FAERS Safety Report 20730322 (Version 1)
Quarter: 2022Q2

REPORT INFORMATION
  Report Type: Report from Study
  Country: IN (occurrence: IN)
  Receive Date: 20220420
  Receipt Date: 20220420
  Transmission Date: 20220721
  Serious: Yes (Other)
  Sender: FDA-Public Use
  Company Number: IN-MYLANLABS-2022M1028671

PATIENT
  Age: 77 Year
  Sex: Male

DRUGS (13)
  1. DEXAMETHASONE [Suspect]
     Active Substance: DEXAMETHASONE
     Indication: Endophthalmitis
     Dosage: 0.4MG/0.1ML
  2. DEXAMETHASONE [Suspect]
     Active Substance: DEXAMETHASONE
     Indication: Staphylococcal infection
  3. VANCOMYCIN [Suspect]
     Active Substance: VANCOMYCIN
     Indication: Endophthalmitis
     Dosage: 1MG/0.1ML
  4. VANCOMYCIN [Suspect]
     Active Substance: VANCOMYCIN
     Indication: Staphylococcal infection
  5. BEVACIZUMAB [Suspect]
     Active Substance: BEVACIZUMAB
     Indication: Epiretinal membrane
     Dosage: UNK
  6. BEVACIZUMAB [Suspect]
     Active Substance: BEVACIZUMAB
     Indication: Cystoid macular oedema
  7. CEFTAZIDIME [Suspect]
     Active Substance: CEFTAZIDIME
     Indication: Endophthalmitis
     Dosage: 2.25MG/0.1ML
  8. CEFTAZIDIME [Suspect]
     Active Substance: CEFTAZIDIME
     Indication: Staphylococcal infection
  9. OFLOXACIN [Concomitant]
     Active Substance: OFLOXACIN
     Indication: Antibiotic prophylaxis
     Dosage: ONE DAY PRIOR TO INJECTION AND THREE TIMES DAILY FOR FIVE DAYS AFTER INJECTION.
     Route: 061
  10. PROPARACAINE [Concomitant]
     Active Substance: PROPARACAINE
     Indication: Local anaesthesia
     Dosage: IN THE CONJUNCTIVAL CUL-DE-SAC
  11. POVIDONE [Concomitant]
     Active Substance: POVIDONE
     Indication: Product used for unknown indication
     Dosage: PERIORBITAL AREA WAS CLEANED WITH IT
     Route: 065
  12. POVIDONE-IODINE [Concomitant]
     Active Substance: POVIDONE-IODINE
     Indication: Product used for unknown indication
     Dosage: UNK, PUT INTO THE CONJUNCTIVAL SAC
  13. SALINE [Concomitant]
     Active Substance: SODIUM CHLORIDE
     Indication: Product used for unknown indication
     Dosage: PUT INTO THE CONJUNCTIVAL SAC

REACTIONS (4)
  - Endophthalmitis [Unknown]
  - Staphylococcal infection [Unknown]
  - Drug ineffective [Unknown]
  - Off label use [Unknown]
